FAERS Safety Report 4822780-3 (Version None)
Quarter: 2005Q4

REPORT INFORMATION
  Report Type: 
  Country: None (occurrence: None)
  Receive Date: 20051104
  Receipt Date: 20051027
  Transmission Date: 20060501
  Serious: Yes (Hospitalization)
  Sender: FDA-Public Use
  Company Number: BR-2005-022759

PATIENT
  Age: 34 Year
  Sex: Female

DRUGS (2)
  1. YASMIN [Suspect]
     Dosage: SEE IMAGE
     Route: 048
     Dates: end: 20051020
  2. YASMIN [Suspect]
     Dosage: SEE IMAGE
     Route: 048
     Dates: start: 20051001

REACTIONS (2)
  - ROAD TRAFFIC ACCIDENT [None]
  - TRAUMATIC FRACTURE [None]
